FAERS Safety Report 22230497 (Version 1)
Quarter: 2023Q2

REPORT INFORMATION
  Report Type: Spontaneous
  Country: GR (occurrence: GR)
  Receive Date: 20230420
  Receipt Date: 20230420
  Transmission Date: 20230721
  Serious: Yes (Other)
  Sender: FDA-Public Use
  Company Number: GR-ABBVIE-4727748

PATIENT
  Age: 37 Year
  Sex: Female

DRUGS (4)
  1. HUMIRA [Suspect]
     Active Substance: ADALIMUMAB
     Indication: Psoriasis
     Route: 058
     Dates: start: 201411, end: 201501
  2. SKYRIZI [Suspect]
     Active Substance: RISANKIZUMAB-RZAA
     Indication: Psoriasis
     Route: 058
     Dates: start: 20220428
  3. T4 (Levothyroxine) [Concomitant]
     Indication: Product used for unknown indication
  4. Atrost (Atorvastatin) [Concomitant]
     Indication: Product used for unknown indication

REACTIONS (5)
  - Conjunctival melanoma [Recovered/Resolved]
  - Eye naevus [Recovered/Resolved]
  - Nasal obstruction [Not Recovered/Not Resolved]
  - Psoriasis [Unknown]
  - Skin lesion [Not Recovered/Not Resolved]

NARRATIVE: CASE EVENT DATE: 20230323
